FAERS Safety Report 15110806 (Version 1)
Quarter: 2018Q3

REPORT INFORMATION
  Report Type: Spontaneous
  Country: US (occurrence: US)
  Receive Date: 20180705
  Receipt Date: 20180705
  Transmission Date: 20181010
  Serious: Yes (Other)
  Sender: FDA-Public Use
  Company Number: US-MYLANLABS-2018M1046590

PATIENT
  Sex: Female
  Weight: 53 kg

DRUGS (4)
  1. PERFOROMIST [Suspect]
     Active Substance: FORMOTEROL FUMARATE DIHYDRATE
     Indication: ASTHMA
     Dosage: ONE VIAL IN MORNING AND ONE IN EVENING, BID
     Route: 055
     Dates: start: 201708
  2. METFORMIN [Concomitant]
     Active Substance: METFORMIN HYDROCHLORIDE
     Indication: PRODUCT USED FOR UNKNOWN INDICATION
     Dosage: 2 DF, BID (TOTAL 1000MG IN THE MORNING AND 1000MG EVENING)
     Dates: start: 201709
  3. FORADIL [Suspect]
     Active Substance: FORMOTEROL FUMARATE
     Indication: RESPIRATION ABNORMAL
     Dosage: UNK
     Route: 055
     Dates: start: 200305, end: 201707
  4. PANTOPRAZOLE [Concomitant]
     Active Substance: PANTOPRAZOLE
     Indication: DYSPEPSIA
     Dosage: 40 MG, BID

REACTIONS (2)
  - Diabetes mellitus [Not Recovered/Not Resolved]
  - Diarrhoea [Not Recovered/Not Resolved]
